FAERS Safety Report 9584762 (Version 1)
Quarter: 2013Q4

REPORT INFORMATION
  Report Type: Spontaneous
  Country: US (occurrence: US)
  Receive Date: 20131002
  Receipt Date: 20131002
  Transmission Date: 20140711
  Serious: No
  Sender: FDA-Public Use
  Company Number: US-AMGEN-USASP2013055262

PATIENT
  Age: 77 Year
  Sex: Male
  Weight: 113.38 kg

DRUGS (15)
  1. ENBREL [Suspect]
     Indication: RHEUMATOID ARTHRITIS
     Dosage: UNK
     Route: 058
  2. ALPRAZOLAM [Concomitant]
     Dosage: UNK
  3. ASPIRIN [Concomitant]
     Dosage: UNK
  4. AVAPRO [Concomitant]
     Dosage: UNK
  5. AZATHIOPRINE [Concomitant]
     Dosage: UNK
  6. DOXAZOSIN [Concomitant]
     Dosage: UNK
  7. FISH OIL [Concomitant]
     Dosage: UNK
  8. FOLIC ACID [Concomitant]
     Dosage: UNK
  9. FUROSEMIDE [Concomitant]
     Dosage: UNK
  10. NADOLOL [Concomitant]
     Dosage: UNK
  11. NEXIUM                             /01479302/ [Concomitant]
     Dosage: UNK
  12. POTASSIUM [Concomitant]
     Dosage: UNK
  13. VITAMIN D                          /00107901/ [Concomitant]
     Dosage: UNK
  14. WARFARIN [Concomitant]
     Dosage: UNK
  15. ZYRTEC [Concomitant]
     Dosage: UNK

REACTIONS (1)
  - White blood cell count increased [Unknown]
